FAERS Safety Report 8380584-1 (Version None)
Quarter: 2012Q1

REPORT INFORMATION
  Report Type: 
  Country: None (occurrence: None)
  Receive Date: 20120323
  Receipt Date: 20110405
  Transmission Date: 20120608
  Serious: Yes (Hospitalization)
  Sender: FDA-Public Use
  Company Number: 163-21880-11040563

PATIENT
  Sex: Male

DRUGS (7)
  1. FUROSEMIDE [Concomitant]
  2. LYRICA [Concomitant]
  3. REVLIMID [Suspect]
     Indication: MULTIPLE MYELOMA
     Dosage: 25 MG, DAILY X 14 DAYS, PO
     Route: 048
     Dates: start: 20090612
  4. COREG CR (CARVEDILOL) [Concomitant]
  5. LORTAB [Concomitant]
  6. IMDUR [Concomitant]
  7. PROCRIT [Concomitant]

REACTIONS (1)
  - MULTIPLE MYELOMA [None]
